FAERS Safety Report 9419923 (Version 1)
Quarter: 2013Q3

REPORT INFORMATION
  Report Type: Spontaneous
  Country: US (occurrence: None)
  Receive Date: 20130723
  Receipt Date: 20130723
  Transmission Date: 20140515
  Serious: No
  Sender: FDA-Public Use
  Company Number: None

PATIENT
  Age: 65 Year
  Sex: Female
  Weight: 74.84 kg

DRUGS (2)
  1. CYMBALTA [Suspect]
     Indication: PAIN
     Route: 048
     Dates: start: 20130101, end: 20130501
  2. CYMBALTA [Suspect]
     Indication: BACK PAIN
     Route: 048
     Dates: start: 20130501, end: 20130711

REACTIONS (5)
  - Amnesia [None]
  - Dizziness [None]
  - Hot flush [None]
  - Gastrointestinal disorder [None]
  - Drug withdrawal syndrome [None]
